FAERS Safety Report 5947556-5 (Version None)
Quarter: 2008Q4

REPORT INFORMATION
  Report Type: 
  Country: None (occurrence: None)
  Receive Date: 20081110
  Receipt Date: 20081104
  Transmission Date: 20090506
  Serious: Yes (Death, Hospitalization, Other)
  Sender: FDA-Public Use
  Company Number: PHHO2007BR16796

PATIENT
  Age: 75 Year
  Sex: Female

DRUGS (6)
  1. DIOVAN [Suspect]
     Dosage: 160 MG, UNK
     Route: 048
     Dates: start: 20051001
  2. EXFORGE [Suspect]
     Dosage: 160/5 MG
     Route: 048
     Dates: end: 20080601
  3. SELOZOK [Concomitant]
     Dosage: 25 MG, QD
     Route: 048
     Dates: end: 20080601
  4. LIPITOR [Concomitant]
     Dosage: 1 TABLET AT NIGHT
     Dates: end: 20080601
  5. SPIRONOLACTONE [Concomitant]
     Dosage: 25 MG, QD
     Dates: end: 20080601
  6. VASOGARD [Concomitant]
     Dosage: 50 MG, BID
     Dates: end: 20080601

REACTIONS (8)
  - BLOOD PRESSURE INCREASED [None]
  - CARDIAC ARREST [None]
  - CARDIAC PACEMAKER INSERTION [None]
  - CEREBROVASCULAR ACCIDENT [None]
  - DEFORMITY [None]
  - DYSARTHRIA [None]
  - HEMIPLEGIA [None]
  - TONGUE SPASM [None]
